FAERS Safety Report 8198694-0 (Version None)
Quarter: 2012Q1

REPORT INFORMATION
  Report Type: 
  Country: None (occurrence: None)
  Receive Date: 20120309
  Receipt Date: 20120131
  Transmission Date: 20120608
  Serious: No
  Sender: FDA-Public Use
  Company Number: US-AMGEN-USASP2011038385

PATIENT
  Age: 74 Year
  Sex: Female
  Weight: 66 kg

DRUGS (3)
  1. PROLIA [Suspect]
     Indication: OSTEOPOROSIS POSTMENOPAUSAL
     Dosage: 60 MG, Q6MO
     Dates: start: 20110630
  2. BETA BLOCKING AGENTS [Concomitant]
     Dosage: UNK
  3. CALCIUM [Concomitant]
     Dosage: UNK

REACTIONS (8)
  - FLATULENCE [None]
  - PAIN IN EXTREMITY [None]
  - LIMB DISCOMFORT [None]
  - MENTAL STATUS CHANGES [None]
  - ABDOMINAL DISCOMFORT [None]
  - BONE PAIN [None]
  - BACK PAIN [None]
  - GASTROINTESTINAL DISORDER [None]
